FAERS Safety Report 7957295 (Version 4)
Quarter: 2025Q1

REPORT INFORMATION
  Report Type: Report from Study
  Country: US (occurrence: US)
  Receive Date: 20110524
  Receipt Date: 20250129
  Transmission Date: 20250409
  Serious: Yes (Hospitalization, Other)
  Sender: AMGEN
  Company Number: US-AMGEN-USASP2011024702

PATIENT
  Age: 56 Year
  Sex: Female

DRUGS (5)
  1. ENBREL [Suspect]
     Active Substance: ETANERCEPT
     Indication: Rheumatoid arthritis
     Dosage: 50 MILLIGRAM, QWK
     Route: 065
     Dates: start: 20050101
  2. ENBREL [Suspect]
     Active Substance: ETANERCEPT
     Dosage: 50 MILLIGRAM, QWK
     Route: 065
  3. LEVOFLOXACIN [Concomitant]
     Active Substance: LEVOFLOXACIN
  4. ROBITUSSIN (GUAIFENESIN) [Concomitant]
     Active Substance: GUAIFENESIN
  5. CODEINE [Concomitant]
     Active Substance: CODEINE

REACTIONS (18)
  - Cholelithiasis [Recovered/Resolved]
  - Monoplegia [Unknown]
  - Nervous system disorder [Unknown]
  - Peripheral artery aneurysm [Unknown]
  - Poor peripheral circulation [Unknown]
  - Rheumatoid arthritis [Not Recovered/Not Resolved]
  - Transient ischaemic attack [Unknown]
  - Arthralgia [Not Recovered/Not Resolved]
  - Vomiting [Unknown]
  - Hypoaesthesia [Not Recovered/Not Resolved]
  - Feeling abnormal [Unknown]
  - Headache [Unknown]
  - Malaise [Unknown]
  - Bronchitis [Recovering/Resolving]
  - Paraesthesia [Unknown]
  - Sinusitis [Unknown]
  - Exostosis [Not Recovered/Not Resolved]
  - Eye pain [Unknown]

NARRATIVE: CASE EVENT DATE: 20110101
